FAERS Safety Report 15048603 (Version 1)
Quarter: 2018Q2

REPORT INFORMATION
  Report Type: Report from Study
  Country: None (occurrence: US)
  Receive Date: 20180622
  Receipt Date: 20180622
  Transmission Date: 20180711
  Serious: Yes (Other)
  Sender: FDA-Public Use
  Company Number: US-ABBVIE-18K-163-2290097-00

PATIENT
  Sex: Female

DRUGS (2)
  1. HUMIRA [Suspect]
     Active Substance: ADALIMUMAB
     Route: 058
  2. HUMIRA [Suspect]
     Active Substance: ADALIMUMAB
     Indication: UVEITIS
     Route: 058

REACTIONS (10)
  - Injection site discomfort [Not Recovered/Not Resolved]
  - Intracranial pressure increased [Unknown]
  - Migraine [Unknown]
  - Neuralgia [Unknown]
  - Accident at work [Unknown]
  - Central nervous system necrosis [Unknown]
  - Electric shock [Unknown]
  - Visual impairment [Unknown]
  - Nervous system disorder [Unknown]
  - Hypersensitivity [Unknown]
